FAERS Safety Report 4512654-X (Version None)
Quarter: 2005Q1

REPORT INFORMATION
  Report Type: 
  Country: None (occurrence: None)
  Receive Date: 20041012
  Receipt Date: 20040615
  Transmission Date: 20050727
  Serious: Yes (Other)
  Sender: FDA-Public Use
  Company Number: A03200401969

PATIENT
  Sex: Male

DRUGS (1)
  1. ROXATRAL- ALFUZOSIN HYDROCHLORIDE - TABLET PR - 10 MG [Suspect]
     Dosage: ORAL
     Route: 048

REACTIONS (2)
  - HYPOTENSION [None]
  - SYNCOPE [None]
